FAERS Safety Report 7800305-8 (Version None)
Quarter: 2011Q4

REPORT INFORMATION
  Report Type: 
  Country: None (occurrence: None)
  Receive Date: 20111006
  Receipt Date: 20111004
  Transmission Date: 20120403
  Serious: Yes (Hospitalization)
  Sender: FDA-Public Use
  Company Number: FR-GLAXOSMITHKLINE-Z0010282A

PATIENT
  Sex: Female
  Weight: 60 kg

DRUGS (4)
  1. SUNITINIB MALATE [Suspect]
     Indication: RENAL CELL CARCINOMA
     Dosage: 50MG PER DAY
     Route: 048
     Dates: start: 20110307, end: 20110515
  2. HUMALOG [Concomitant]
     Indication: DIABETES MELLITUS
     Dosage: 3IU THREE TIMES PER DAY
     Route: 048
     Dates: start: 20100312
  3. PAZOPANIB [Suspect]
     Indication: RENAL CELL CARCINOMA
     Dosage: 800MG PER DAY
     Route: 048
     Dates: start: 20110530
  4. CREON [Concomitant]
     Indication: PANCREATIC INSUFFICIENCY
     Dosage: 25000IU THREE TIMES PER DAY
     Route: 048
     Dates: start: 20100312

REACTIONS (1)
  - HYPOGLYCAEMIA [None]
